FAERS Safety Report 6236228-8 (Version None)
Quarter: 2009Q2

REPORT INFORMATION
  Report Type: 
  Country: None (occurrence: None)
  Receive Date: 20090619
  Receipt Date: 20090608
  Transmission Date: 20091009
  Serious: Yes (Life-Threatening, Hospitalization, Other)
  Sender: FDA-Public Use
  Company Number: IE-PFIZER INC-2007054893

PATIENT
  Age: 48 Year

DRUGS (6)
  1. LIPITOR [Suspect]
     Indication: BLOOD CHOLESTEROL INCREASED
     Dates: end: 20070603
  2. LIPITOR [Interacting]
     Indication: HYPERLIPIDAEMIA
  3. FUSIDIC ACID [Interacting]
     Indication: ARTHRITIS BACTERIAL
     Route: 048
     Dates: end: 20070610
  4. LINEZOLID [Concomitant]
     Indication: ARTHRITIS BACTERIAL
     Route: 048
     Dates: end: 20070610
  5. ACETYLSALICYLIC ACID [Concomitant]
     Indication: CHEST PAIN
     Route: 048
     Dates: end: 20070610
  6. TRAMADOL HCL [Concomitant]
     Indication: OSTEOARTHRITIS
     Route: 048
     Dates: end: 20070603

REACTIONS (13)
  - ASTHENIA [None]
  - BACTERIAL DISEASE CARRIER [None]
  - DEHYDRATION [None]
  - DRUG INTERACTION [None]
  - KNEE ARTHROPLASTY [None]
  - LIVER FUNCTION TEST ABNORMAL [None]
  - MALAISE [None]
  - MOBILITY DECREASED [None]
  - MYALGIA [None]
  - NAUSEA [None]
  - RENAL FAILURE [None]
  - RHABDOMYOLYSIS [None]
  - VOMITING [None]
